FAERS Safety Report 8549454-X (Version None)
Quarter: 2012Q3

REPORT INFORMATION
  Report Type: 
  Country: None (occurrence: None)
  Receive Date: 20120730
  Receipt Date: 20120723
  Transmission Date: 20120928
  Serious: No
  Sender: FDA-Public Use
  Company Number: US-B.I. PHARMACEUTICALS,INC./RIDGEFIELD-2012-BP-16340BP

PATIENT
  Sex: Female

DRUGS (2)
  1. PRADAXA [Suspect]
     Indication: CARDIAC DISORDER
     Dosage: 300 MG
     Route: 048
     Dates: start: 20120501, end: 20120701
  2. PLAVIX [Concomitant]
     Indication: CARDIAC DISORDER
     Dates: start: 20080101

REACTIONS (9)
  - MENTAL IMPAIRMENT [None]
  - BLINDNESS [None]
  - DIZZINESS [None]
  - HAEMATURIA [None]
  - DYSPEPSIA [None]
  - EYE PAIN [None]
  - DEAFNESS [None]
  - HEADACHE [None]
  - EYE BURNS [None]
